FAERS Safety Report 17491594 (Version 1)
Quarter: 2020Q1

REPORT INFORMATION
  Report Type: Report from Study
  Country: KR (occurrence: KR)
  Receive Date: 20200304
  Receipt Date: 20200304
  Transmission Date: 20200409
  Serious: Yes (Hospitalization)
  Sender: FDA-Public Use
  Company Number: KR-ROCHE-2520261

PATIENT
  Age: 13 Year
  Sex: Female
  Weight: 37 kg

DRUGS (4)
  1. FOLIC ACID. [Concomitant]
     Active Substance: FOLIC ACID
     Route: 048
     Dates: start: 20181005
  2. ACTEMRA [Suspect]
     Active Substance: TOCILIZUMAB
     Dosage: NEXT DOSE OF 360 MG ON: 22/APR/2019, 13/MAY/2019, 31/MAY/2019, 28/JUN/2019, 02/AUG/2019, 16/AUG/2019
     Route: 042
     Dates: start: 20190408
  3. ACTEMRA [Suspect]
     Active Substance: TOCILIZUMAB
     Indication: STILL^S DISEASE
     Dosage: NEXT DOSE OF 320 MG ON: 11/MAR/2019 AND 25/MAR/2019
     Route: 042
     Dates: start: 20190225
  4. CURAN [Concomitant]
     Active Substance: RANITIDINE HYDROCHLORIDE
     Indication: GASTROINTESTINAL DISORDER PROPHYLAXIS
     Route: 048
     Dates: start: 20180115, end: 201909

REACTIONS (1)
  - Spinal fracture [Recovered/Resolved]

NARRATIVE: CASE EVENT DATE: 201906
